FAERS Safety Report 15720041 (Version 1)
Quarter: 2018Q4

REPORT INFORMATION
  Report Type: Spontaneous
  Country: FR (occurrence: FR)
  Receive Date: 20181213
  Receipt Date: 20181213
  Transmission Date: 20190205
  Serious: Yes (Death, Hospitalization)
  Sender: FDA-Public Use
  Company Number: FR-LPDUSPRD-20182333

PATIENT
  Age: 77 Year
  Sex: Female
  Weight: 67 kg

DRUGS (16)
  1. AMOXICILLINE [Suspect]
     Active Substance: AMOXICILLIN
     Dosage: 1 GM, 1 TOTAL
     Route: 042
     Dates: start: 20180626, end: 20180626
  2. RIFADINE [Concomitant]
     Active Substance: RIFAMPIN
     Dosage: 600MG, 1 IN 1 D
     Route: 042
  3. ALPRAZOLAM ARROW [Concomitant]
     Active Substance: ALPRAZOLAM
     Dosage: UNKNOWN
     Route: 048
  4. MACROGOL 4000 MYLAN [Concomitant]
     Active Substance: POLYETHYLENE GLYCOL 4000
     Dosage: 1 DOSAGE FORM
     Route: 048
  5. LEXOMIL ROCHE [Suspect]
     Active Substance: BROMAZEPAM
     Dosage: 6 MG (6MG, 1 IN 1 D)
     Route: 048
     Dates: start: 20180623
  6. DUROGESIC [Concomitant]
     Active Substance: FENTANYL
     Dosage: 3 DOSAGE FORMS(1 DF, 3 IN 1 D)
     Route: 062
  7. FLUOXETINE ARROW [Concomitant]
     Active Substance: FLUOXETINE HYDROCHLORIDE
     Dosage: 20MG (20MG, 1 IN 1 D)
     Route: 048
  8. LOVENOX [Concomitant]
     Active Substance: ENOXAPARIN SODIUM
     Dosage: 4000 IU, 1 IN 1 D
     Route: 058
  9. MIRTAZAPINE ARROW [Concomitant]
     Active Substance: MIRTAZAPINE
     Dosage: 15MG (15 MG, 1 IN 1 D)
     Route: 048
  10. FUROSEMIDE ARROW [Suspect]
     Active Substance: FUROSEMIDE
     Dosage: 20MG (20MG, 1 IN 1 D)
     Route: 048
     Dates: start: 20180627
  11. CUBICIN [Concomitant]
     Active Substance: DAPTOMYCIN
     Dosage: 600MG, 1 IN 1 D
     Route: 042
     Dates: start: 20180615
  12. DAFALGAN [Concomitant]
     Active Substance: ACETAMINOPHEN
     Dosage: 1 GM
     Route: 048
  13. FERINJECT [Suspect]
     Active Substance: FERRIC CARBOXYMALTOSE
     Dosage: 1 GM, 1 TOTAL
     Route: 042
     Dates: start: 20180628, end: 20180628
  14. TERBUTALINE ARROW [Concomitant]
     Active Substance: TERBUTALINE
     Dosage: 7.5 MG, 1 IN 1 D
     Route: 065
  15. ALDACTONE [Suspect]
     Active Substance: SPIRONOLACTONE
     Dosage: 25 MG, 1 TOTAL
     Route: 048
     Dates: start: 20180626, end: 20180626
  16. LANSOPRAZOLE MYLAN [Suspect]
     Active Substance: LANSOPRAZOLE
     Dosage: 15MG (15MG, 1 IN 1 D)
     Route: 048
     Dates: start: 20180621

REACTIONS (1)
  - Acute generalised exanthematous pustulosis [Unknown]

NARRATIVE: CASE EVENT DATE: 20180630
